FAERS Safety Report 7560881-X (Version None)
Quarter: 2011Q2

REPORT INFORMATION
  Report Type: 
  Country: None (occurrence: None)
  Receive Date: 20110621
  Receipt Date: 20110309
  Transmission Date: 20111010
  Serious: No
  Sender: FDA-Public Use
  Company Number: US-ASTRAZENECA-2004UW07958

PATIENT
  Age: 59 Year
  Sex: Female
  Weight: 124.7 kg

DRUGS (2)
  1. VESICARE [Concomitant]
  2. ATACAND [Suspect]
     Indication: HYPERTENSION
     Route: 048
     Dates: start: 19990101

REACTIONS (5)
  - WEIGHT LOSS POOR [None]
  - MYALGIA [None]
  - MUSCLE SPASMS [None]
  - WEIGHT INCREASED [None]
  - OEDEMA PERIPHERAL [None]
